FAERS Safety Report 5105593-7 (Version None)
Quarter: 2006Q3

REPORT INFORMATION
  Report Type: 
  Country: None (occurrence: None)
  Receive Date: 20060915
  Receipt Date: 20060906
  Transmission Date: 20061208
  Serious: Yes (Other)
  Sender: FDA-Public Use
  Company Number: PHFR2006GB02752

PATIENT
  Age: 1 Week
  Sex: Male
  Weight: 1890 kg

DRUGS (1)
  1. CLOZAPINE [Suspect]

REACTIONS (3)
  - NEUTROPENIA NEONATAL [None]
  - PREMATURE BABY [None]
  - SEPSIS [None]
